FAERS Safety Report 23120245 (Version 1)
Quarter: 2023Q4

REPORT INFORMATION
  Report Type: Spontaneous
  Country: US (occurrence: US)
  Receive Date: 20231029
  Receipt Date: 20231029
  Transmission Date: 20240110
  Serious: No
  Sender: FDA-Public Use
  Company Number: US-OPELLA-2023OHG009162

PATIENT
  Sex: Female

DRUGS (1)
  1. ICY HOT WITH LIDOCAINE PAIN RELIEVING [Suspect]
     Active Substance: LIDOCAINE\MENTHOL
     Dosage: DOSE STRENGTH 5 G; 1 G/100 G
     Route: 065

REACTIONS (2)
  - Blister [Unknown]
  - Skin injury [Unknown]
